FAERS Safety Report 19922551 (Version 1)
Quarter: 2021Q4

REPORT INFORMATION
  Report Type: Spontaneous
  Country: US (occurrence: US)
  Receive Date: 20211006
  Receipt Date: 20211006
  Transmission Date: 20220303
  Serious: Yes (Death, Hospitalization, Other)
  Sender: FDA-Public Use
  Company Number: US-SUN PHARMACEUTICAL INDUSTRIES LTD-2021R1-313187

PATIENT
  Age: 25 Year
  Sex: Male

DRUGS (1)
  1. FERROUS SULFATE [Suspect]
     Active Substance: FERROUS SULFATE
     Indication: Product used for unknown indication
     Dosage: UNK
     Route: 065

REACTIONS (14)
  - Overdose [Fatal]
  - Suicide attempt [Fatal]
  - Soft tissue haemorrhage [Fatal]
  - Mucosal hyperaemia [Fatal]
  - Gastrointestinal haemorrhage [Fatal]
  - Haematemesis [Unknown]
  - Mental status changes [Unknown]
  - Hypotension [Unknown]
  - Rectal haemorrhage [Unknown]
  - Tachycardia [Unknown]
  - Multiple organ dysfunction syndrome [Unknown]
  - Coagulopathy [Unknown]
  - Liver function test increased [Unknown]
  - Acute kidney injury [Unknown]
